FAERS Safety Report 7423948-2 (Version None)
Quarter: 2011Q2

REPORT INFORMATION
  Report Type: 
  Country: None (occurrence: None)
  Receive Date: 20110419
  Receipt Date: 20110411
  Transmission Date: 20111010
  Serious: Yes (Other)
  Sender: FDA-Public Use
  Company Number: A0922449A

PATIENT
  Age: 71 Year
  Sex: Male

DRUGS (2)
  1. LITHIUM [Concomitant]
  2. PARNATE [Suspect]
     Dosage: 40MG PER DAY
     Route: 048

REACTIONS (4)
  - AGGRESSION [None]
  - FEELING DRUNK [None]
  - TREMOR [None]
  - FEELING ABNORMAL [None]
